FAERS Safety Report 5869990-4 (Version None)
Quarter: 2008Q3

REPORT INFORMATION
  Report Type: 
  Country: None (occurrence: None)
  Receive Date: 20080904
  Receipt Date: 20080904
  Transmission Date: 20090109
  Serious: Yes (Death, Hospitalization)
  Sender: FDA-Public Use
  Company Number: PHEH2000US01981

PATIENT
  Sex: Male
  Weight: 117 kg

DRUGS (17)
  1. SIMULECT SIC+ [Suspect]
     Indication: HEART TRANSPLANT
     Dosage: 20 MG, DAY 0
     Route: 042
     Dates: start: 20000421, end: 20000421
  2. SIMULECT SIC+ [Suspect]
     Dosage: 20 MG, DAY 4
     Dates: start: 20000425, end: 20000425
  3. NPH INSULIN (INSULIN INJECTION, ISOPHANE) [Concomitant]
  4. PRILOSEC [Concomitant]
  5. CELLCEPT [Concomitant]
  6. SLO-PHYLLIN (AMINOPHYLLINE) [Concomitant]
  7. DEPAKENE [Concomitant]
  8. NEORAL [Concomitant]
  9. SUBLIMAZE (FENTANYL) [Concomitant]
  10. ISUPREL (ISOPRENALINE HYDROCHLORIDE) [Concomitant]
  11. HALDOL SOLUTAB [Concomitant]
  12. FENTANYL-25 [Concomitant]
  13. SOLU-MEDROL [Concomitant]
  14. VANCOMYCIN HYDROCHLORIDE [Concomitant]
  15. DIFLUCAN [Concomitant]
  16. CIPRO [Concomitant]
  17. ZOVIRAX [Concomitant]

REACTIONS (2)
  - RESPIRATORY FAILURE [None]
  - WOUND DEHISCENCE [None]
